FAERS Safety Report 6189944-0 (Version None)
Quarter: 2009Q2

REPORT INFORMATION
  Report Type: 
  Country: None (occurrence: None)
  Receive Date: 20090512
  Receipt Date: 20090512
  Transmission Date: 20091009
  Serious: Yes (Other)
  Sender: FDA-Public Use
  Company Number: None

PATIENT
  Age: 39 Year
  Sex: Male
  Weight: 77.1115 kg

DRUGS (2)
  1. VARENICLINE 0.5 - 1MG KIT PFIZER [Suspect]
     Indication: SMOKING CESSATION THERAPY
     Dosage: 0.5 - 1MG TITRATED DAILY PO
     Route: 048
     Dates: start: 20090317, end: 20090406
  2. GEMFIBROZIL 600MG APTOEX [Suspect]
     Indication: HYPERLIPIDAEMIA
     Dosage: 600MG TWICE DAILY PO
     Route: 048
     Dates: start: 20081209

REACTIONS (5)
  - ABNORMAL DREAMS [None]
  - FORMICATION [None]
  - HOMICIDAL IDEATION [None]
  - MOOD ALTERED [None]
  - SUICIDAL IDEATION [None]
